FAERS Safety Report 7583345-6 (Version None)
Quarter: 2011Q2

REPORT INFORMATION
  Report Type: 
  Country: None (occurrence: None)
  Receive Date: 20110630
  Receipt Date: 20110620
  Transmission Date: 20111010
  Serious: Yes (Hospitalization)
  Sender: FDA-Public Use
  Company Number: US-ELI_LILLY_AND_COMPANY-US201004007290

PATIENT
  Sex: Female

DRUGS (3)
  1. FORTEO [Suspect]
     Dosage: 20 UG, QD
  2. EVISTA [Suspect]
  3. FORTEO [Suspect]
     Indication: OSTEOPOROSIS
     Dosage: 20 UG, DAILY (1/D)
     Dates: start: 20090801

REACTIONS (7)
  - HERPES ZOSTER [None]
  - HOSPITALISATION [None]
  - MUSCLE STRAIN [None]
  - BURNING SENSATION [None]
  - MALAISE [None]
  - NECK INJURY [None]
  - DRUG INEFFECTIVE [None]
